FAERS Safety Report 11374865 (Version 1)
Quarter: 2015Q3

REPORT INFORMATION
  Report Type: Spontaneous
  Country: US (occurrence: None)
  Receive Date: 20150812
  Receipt Date: 20150812
  Transmission Date: 20151125
  Serious: No
  Sender: FDA-Public Use
  Company Number: None

PATIENT
  Age: 65 Year
  Sex: Female

DRUGS (5)
  1. OCUVITE VITAMIN [Concomitant]
  2. CAPECITABINE 500MG TEVA [Suspect]
     Active Substance: CAPECITABINE
     Indication: RECTAL CANCER
     Dosage: 2000 MG IN AM?1500 MG IN PM
     Route: 048
     Dates: start: 20150718, end: 20150811
  3. LISINOPRIL AND HYDROCHLOROTHIAZIDE [Concomitant]
     Active Substance: HYDROCHLOROTHIAZIDE\LISINOPRIL
  4. FISH OIL [Concomitant]
     Active Substance: FISH OIL
  5. ONDANSETRON [Concomitant]
     Active Substance: ONDANSETRON

REACTIONS (3)
  - Toxicity to various agents [None]
  - Hypokalaemia [None]
  - Diarrhoea [None]

NARRATIVE: CASE EVENT DATE: 20150811
